FAERS Safety Report 24794992 (Version 1)
Quarter: 2024Q4

REPORT INFORMATION
  Report Type: Spontaneous
  Country: JP (occurrence: JP)
  Receive Date: 20241231
  Receipt Date: 20241231
  Transmission Date: 20250115
  Serious: Yes (Hospitalization, Other)
  Sender: RANBAXY
  Company Number: JP-SUN PHARMACEUTICAL INDUSTRIES LTD-2024R1-482766

PATIENT
  Age: 6 Decade
  Sex: Female

DRUGS (2)
  1. LIORESAL [Suspect]
     Active Substance: BACLOFEN
     Indication: Dystonia
     Dosage: UNK
     Route: 048
  2. LITHIUM CARBONATE [Concomitant]
     Active Substance: LITHIUM CARBONATE
     Indication: Product used for unknown indication
     Dosage: UNK
     Route: 048

REACTIONS (2)
  - Altered state of consciousness [Recovering/Resolving]
  - Acute kidney injury [Unknown]
